FAERS Safety Report 17459879 (Version 3)
Quarter: 2021Q1

REPORT INFORMATION
  Report Type: Spontaneous
  Country: US (occurrence: US)
  Receive Date: 20200226
  Receipt Date: 20210218
  Transmission Date: 20210419
  Serious: No
  Sender: FDA-Public Use
  Company Number: US-SA-2020SA047600

PATIENT
  Age: 40 Year
  Sex: Female

DRUGS (2)
  1. DUPILUMAB [Suspect]
     Active Substance: DUPILUMAB
     Indication: ASTHMA
     Dosage: 300 MG, QOW
     Route: 058
     Dates: start: 20200103
  2. DUPILUMAB [Suspect]
     Active Substance: DUPILUMAB
     Indication: SINUSITIS
     Dosage: 300 MG, QOW
     Route: 058
     Dates: start: 20200218

REACTIONS (6)
  - Pruritus [Unknown]
  - Dyspnoea [Unknown]
  - Product use issue [Unknown]
  - Nasal congestion [Unknown]
  - Product use in unapproved indication [Unknown]
  - Pruritus genital [Unknown]

NARRATIVE: CASE EVENT DATE: 2020
